FAERS Safety Report 6612748-9 (Version None)
Quarter: 2010Q1

REPORT INFORMATION
  Report Type: 
  Country: None (occurrence: None)
  Receive Date: 20100303
  Receipt Date: 20100219
  Transmission Date: 20100710
  Serious: Yes (Other)
  Sender: FDA-Public Use
  Company Number: GB-PFIZER INC-2009251695

PATIENT
  Age: 71 Year
  Sex: Male

DRUGS (1)
  1. MISOPROSTOL, DICLOFENAC SODIUM [Suspect]
     Indication: OSTEOARTHRITIS
     Dosage: 50 MG, ONCE EVERY 3 DAYS
     Route: 048
     Dates: start: 20080305

REACTIONS (1)
  - MYOCARDIAL ISCHAEMIA [None]
